FAERS Safety Report 10516055 (Version 1)
Quarter: 2014Q4

REPORT INFORMATION
  Report Type: Spontaneous
  Country: US (occurrence: US)
  Receive Date: 20141014
  Receipt Date: 20141014
  Transmission Date: 20150528
  Serious: Yes (Hospitalization, Other)
  Sender: FDA-Public Use
  Company Number: CHPA2014US013717

PATIENT
  Age: 82 Year
  Sex: Female

DRUGS (1)
  1. EXCEDRIN EXTRA STRENGTH [Suspect]
     Active Substance: ACETAMINOPHEN\ASPIRIN\CAFFEINE
     Indication: HEADACHE
     Dosage: 1 DF, UNK
     Route: 048

REACTIONS (4)
  - Incorrect dose administered [Unknown]
  - Nocturia [Unknown]
  - Cerebrovascular accident [Recovered/Resolved]
  - Insomnia [Not Recovered/Not Resolved]
